FAERS Safety Report 25016007 (Version 2)
Quarter: 2025Q2

REPORT INFORMATION
  Report Type: Spontaneous
  Country: US (occurrence: US)
  Receive Date: 20250227
  Receipt Date: 20250521
  Transmission Date: 20250716
  Serious: No
  Sender: AMNEAL
  Company Number: US-AMNEAL PHARMACEUTICALS-2024-AMRX-04570

PATIENT
  Age: 85 Year
  Sex: Female
  Weight: 37.642 kg

DRUGS (6)
  1. CREXONT [Suspect]
     Active Substance: CARBIDOPA\LEVODOPA
     Indication: Parkinson^s disease
     Dosage: 2 TABLETS, BID
     Route: 048
     Dates: start: 20241213
  2. CREXONT [Suspect]
     Active Substance: CARBIDOPA\LEVODOPA
     Dosage: (52.5/210MG) 2 CAPSULES, 3 /DAY
     Route: 048
     Dates: end: 20241217
  3. RYTARY [Suspect]
     Active Substance: CARBIDOPA\LEVODOPA
     Indication: Product used for unknown indication
     Dosage: 3 CAPSULES, 4X/DAY
     Route: 048
  4. RYTARY [Suspect]
     Active Substance: CARBIDOPA\LEVODOPA
     Route: 048
     Dates: start: 20250115
  5. LEVOTHYROXINE [Concomitant]
     Active Substance: LEVOTHYROXINE
     Indication: Product used for unknown indication
     Route: 065
  6. CELECOXIB [Concomitant]
     Active Substance: CELECOXIB
     Indication: Product used for unknown indication
     Route: 065

REACTIONS (5)
  - Heart rate increased [Recovered/Resolved]
  - Blood pressure abnormal [Recovered/Resolved]
  - Tremor [Unknown]
  - Tongue blistering [Unknown]
  - Product substitution issue [Unknown]

NARRATIVE: CASE EVENT DATE: 20241213
